FAERS Safety Report 4666361-3 (Version None)
Quarter: 2005Q2

REPORT INFORMATION
  Report Type: 
  Country: None (occurrence: None)
  Receive Date: 20050517
  Receipt Date: 20050504
  Transmission Date: 20051028
  Serious: Yes (Death, Other)
  Sender: FDA-Public Use
  Company Number: 2004052118

PATIENT
  Age: 20 Year
  Sex: Male

DRUGS (4)
  1. NEURONTIN [Suspect]
     Indication: DEPRESSION
  2. NEURONTIN [Suspect]
     Indication: SLEEP DISORDER
  3. VENLAFAXINE HCL [Concomitant]
  4. RISPERDAL [Concomitant]

REACTIONS (18)
  - ACUTE RESPIRATORY DISTRESS SYNDROME [None]
  - AGGRESSION [None]
  - ANGER [None]
  - ANOXIC ENCEPHALOPATHY [None]
  - ANXIETY [None]
  - BRAIN OEDEMA [None]
  - CARDIO-RESPIRATORY ARREST [None]
  - COMPLETED SUICIDE [None]
  - INJURY [None]
  - INJURY ASPHYXIATION [None]
  - LOSS OF CONSCIOUSNESS [None]
  - PAIN [None]
  - PNEUMOMEDIASTINUM [None]
  - PNEUMONIA ASPIRATION [None]
  - PNEUMONITIS [None]
  - PRESCRIBED OVERDOSE [None]
  - RESPIRATORY FAILURE [None]
  - VOMITING [None]
